FAERS Safety Report 9378353 (Version 3)
Quarter: 2013Q3

REPORT INFORMATION
  Report Type: Report from Study
  Country: SK (occurrence: SK)
  Receive Date: 20130701
  Receipt Date: 20130805
  Transmission Date: 20140515
  Serious: Yes (Hospitalization)
  Sender: FDA-Public Use
  Company Number: SK-JNJFOC-20130617429

PATIENT
  Age: 68 Year
  Sex: Male
  Weight: 105 kg

DRUGS (2)
  1. USTEKINUMAB [Suspect]
     Indication: PSORIASIS
     Route: 058
     Dates: start: 201004
  2. CORTICOSTEROIDS [Concomitant]
     Route: 061

REACTIONS (3)
  - Staphylococcal infection [Recovered/Resolved]
  - Photodermatosis [Recovered/Resolved]
  - Impetigo [Recovered/Resolved]
